FAERS Safety Report 9369531 (Version 3)
Quarter: 2015Q3

REPORT INFORMATION
  Report Type: Report from Study
  Country: BR (occurrence: BR)
  Receive Date: 20130626
  Receipt Date: 20150727
  Transmission Date: 20151125
  Serious: Yes (Hospitalization, Other)
  Sender: FDA-Public Use
  Company Number: BR-ROCHE-1239895

PATIENT
  Age: 48 Year
  Sex: Female
  Weight: 54 kg

DRUGS (21)
  1. AEROLIN [Concomitant]
     Active Substance: ALBUTEROL
  2. DIGESAN [Concomitant]
     Active Substance: BROMOPRIDE
     Route: 065
     Dates: start: 2007
  3. PREDNISONE. [Concomitant]
     Active Substance: PREDNISONE
     Route: 065
     Dates: start: 2006
  4. ALENIA (BRAZIL) [Concomitant]
     Active Substance: BUDESONIDE\FORMOTEROL FUMARATE
     Dosage: 12/400 UG
     Route: 065
     Dates: start: 2008
  5. SALBUTAMOL [Concomitant]
     Active Substance: ALBUTEROL
     Route: 065
     Dates: start: 2007
  6. LASIX [Concomitant]
     Active Substance: FUROSEMIDE
     Route: 065
     Dates: start: 2007
  7. BAMIFIX [Concomitant]
     Active Substance: BAMIFYLLINE HYDROCHLORIDE
     Route: 065
     Dates: start: 2006
  8. RANITIDINE [Concomitant]
     Active Substance: RANITIDINE\RANITIDINE HYDROCHLORIDE
     Route: 065
     Dates: start: 2012
  9. ENALAPRIL [Concomitant]
     Active Substance: ENALAPRIL
     Route: 065
     Dates: start: 2007
  10. RIVOTRIL [Concomitant]
     Active Substance: CLONAZEPAM
     Route: 065
     Dates: start: 2007
  11. BUDESONIDE. [Concomitant]
     Active Substance: BUDESONIDE
     Route: 065
     Dates: start: 2007
  12. FLUOXETINE [Concomitant]
     Active Substance: FLUOXETINE\FLUOXETINE HYDROCHLORIDE
     Route: 065
     Dates: start: 2006
  13. XOLAIR [Suspect]
     Active Substance: OMALIZUMAB
     Indication: ASTHMA
     Dosage: 28 TO 28 DAYS
     Route: 065
     Dates: start: 20110613
  14. APRESOLINE HYDROCHLORIDE [Concomitant]
     Active Substance: HYDRALAZINE HYDROCHLORIDE
     Route: 065
     Dates: start: 2011
  15. METFORMIN [Concomitant]
     Active Substance: METFORMIN HYDROCHLORIDE
     Route: 065
     Dates: start: 2007
  16. GLIBENCLAMIDE [Concomitant]
     Active Substance: GLYBURIDE
     Route: 065
     Dates: start: 2011
  17. LUMIGAN [Concomitant]
     Active Substance: BIMATOPROST
     Route: 065
     Dates: start: 2007
  18. XOLAIR [Suspect]
     Active Substance: OMALIZUMAB
     Route: 058
     Dates: start: 20130618
  19. INSULIN REGULAR [Concomitant]
     Active Substance: INSULIN NOS
     Route: 065
     Dates: start: 2012
  20. NORVASC [Concomitant]
     Active Substance: AMLODIPINE BESYLATE
     Route: 065
     Dates: start: 2006
  21. OMEPRAZOLE. [Concomitant]
     Active Substance: OMEPRAZOLE
     Route: 065
     Dates: start: 2007

REACTIONS (21)
  - Pneumonia bacterial [Recovered/Resolved]
  - Diabetes mellitus [Recovering/Resolving]
  - Erysipelas [Unknown]
  - Fatigue [Recovering/Resolving]
  - Apnoea [Unknown]
  - Hypertension [Recovering/Resolving]
  - Abdominal pain upper [Unknown]
  - Dyspnoea [Unknown]
  - Oesophagitis [Unknown]
  - Wound [Recovering/Resolving]
  - Fluid retention [Unknown]
  - Weight increased [Recovered/Resolved]
  - Gastrooesophageal reflux disease [Unknown]
  - Cataract [Recovering/Resolving]
  - Asthma [Recovering/Resolving]
  - Pneumonia [Recovering/Resolving]
  - Dyskinesia oesophageal [Unknown]
  - Insomnia [Unknown]
  - Pulmonary oedema [Recovering/Resolving]
  - Gait disturbance [Recovering/Resolving]
  - Diabetic foot [Unknown]

NARRATIVE: CASE EVENT DATE: 20150505
